FAERS Safety Report 5191528-8 (Version None)
Quarter: 2006Q4

REPORT INFORMATION
  Report Type: 
  Country: None (occurrence: None)
  Receive Date: 20061219
  Receipt Date: 20061219
  Transmission Date: 20070319
  Serious: Yes (Hospitalization)
  Sender: FDA-Public Use
  Company Number: None

PATIENT
  Age: 60 Year
  Sex: Male
  Weight: 122.4712 kg

DRUGS (1)
  1. AZITHROMYCIN [Suspect]
     Indication: CELLULITIS
     Dosage: 250 MG DAILY PO
     Route: 048
     Dates: start: 20061204, end: 20061208

REACTIONS (11)
  - CELLULITIS [None]
  - DRUG ERUPTION [None]
  - EOSINOPHIL COUNT [None]
  - OEDEMA PERIPHERAL [None]
  - PAIN [None]
  - PITTING OEDEMA [None]
  - PRURITUS [None]
  - RASH MORBILLIFORM [None]
  - SKIN EXFOLIATION [None]
  - SKIN LESION [None]
  - WEIGHT INCREASED [None]
